FAERS Safety Report 25105650 (Version 1)
Quarter: 2025Q1

REPORT INFORMATION
  Report Type: Spontaneous
  Country: US (occurrence: US)
  Receive Date: 20250321
  Receipt Date: 20250321
  Transmission Date: 20250409
  Serious: No
  Sender: ESPERION THERAPEUTICS
  Company Number: US-ESPERIONTHERAPEUTICS-2024USA00814

PATIENT
  Age: 71 Year
  Sex: Male

DRUGS (5)
  1. NEXLETOL [Suspect]
     Active Substance: BEMPEDOIC ACID
     Indication: Blood cholesterol abnormal
     Dosage: 180 MILLIGRAM, QD (AROUND 10 AT NIGHT)
     Route: 048
  2. METOPROLOL [Concomitant]
     Active Substance: METOPROLOL
     Route: 065
  3. FINASTERIDE [Concomitant]
     Active Substance: FINASTERIDE
     Route: 065
  4. TRAZODONE [Concomitant]
     Active Substance: TRAZODONE HYDROCHLORIDE
     Route: 065
  5. VITAMINS [Concomitant]
     Active Substance: VITAMINS
     Route: 065

REACTIONS (1)
  - Aspartate aminotransferase increased [Not Recovered/Not Resolved]

NARRATIVE: CASE EVENT DATE: 20240501
